FAERS Safety Report 8196894-7 (Version None)
Quarter: 2012Q1

REPORT INFORMATION
  Report Type: 
  Country: None (occurrence: None)
  Receive Date: 20120309
  Receipt Date: 20120301
  Transmission Date: 20120608
  Serious: Yes (Other)
  Sender: FDA-Public Use
  Company Number: FR-NOVOPROD-345600

PATIENT
  Age: 54 Year
  Sex: Female
  Weight: 91 kg

DRUGS (7)
  1. AMARYL [Concomitant]
     Indication: DIABETES MELLITUS
     Dosage: 3 MG, QD
  2. GLUCOPHAGE [Concomitant]
     Indication: DIABETES MELLITUS
     Dosage: 2.55 G, QD
     Route: 048
  3. NEBIVOLOL HCL [Concomitant]
     Indication: HYPERTENSION
     Dosage: 5 MG, QD
     Route: 048
  4. LERCANIDIPINE [Concomitant]
     Indication: HYPERTENSION
     Dosage: 20 MG, QD
     Route: 048
  5. VICTOZA [Suspect]
     Indication: TYPE 2 DIABETES MELLITUS
     Dosage: 1.2 MG, QD
     Route: 058
     Dates: start: 20110504, end: 20110609
  6. COTRIATEC [Concomitant]
     Indication: HYPERTENSION
     Dosage: UNK UNK, QD
     Route: 048
  7. CRESTOR [Concomitant]
     Indication: DYSLIPIDAEMIA
     Dosage: ONE DOSE
     Route: 048

REACTIONS (3)
  - DYSPEPSIA [None]
  - ABDOMINAL PAIN [None]
  - HYPERLIPASAEMIA [None]
